FAERS Safety Report 6971960-X (Version None)
Quarter: 2010Q3

REPORT INFORMATION
  Report Type: 
  Country: None (occurrence: None)
  Receive Date: 20100908
  Receipt Date: 20100908
  Transmission Date: 20110219
  Serious: No
  Sender: FDA-Public Use
  Company Number: None

PATIENT
  Sex: Male
  Weight: 134.7183 kg

DRUGS (1)
  1. LISINOPRIL [Suspect]
     Dosage: 20MG QD PO
     Route: 048
     Dates: start: 20100601

REACTIONS (1)
  - COUGH [None]
